FAERS Safety Report 9456050 (Version 1)
Quarter: 2013Q3

REPORT INFORMATION
  Report Type: Spontaneous
  Country: CO (occurrence: None)
  Receive Date: 20130808
  Receipt Date: 20130808
  Transmission Date: 20140515
  Serious: Yes (Hospitalization)
  Sender: FDA-Public Use
  Company Number: DSU-2013-04196

PATIENT
  Age: 80 Year
  Sex: Female

DRUGS (3)
  1. OLMETEC HCT [Suspect]
     Indication: HYPERTENSION
     Dosage: 20/12.5 MG (QD), PER ORAL
     Route: 048
     Dates: start: 2010
  2. SYMBICORT(FORMOTEROL FUMARATE, BUDESONIDE) (INHALATION GAS) (FORMOTEROL FUMARATE, BUDESONIDE) [Concomitant]
  3. BERODUAL (FENOTEROL HYDROBROMIDE, IPRATROPIUM BROMIDE) (INHIALATION GAS) (FENOTEROL HYDROBROMIDE, IPRATROPIUM BROMIDE) [Concomitant]

REACTIONS (3)
  - Cough [None]
  - Increased upper airway secretion [None]
  - Pneumonia [None]
